FAERS Safety Report 5526812-9 (Version None)
Quarter: 2007Q4

REPORT INFORMATION
  Report Type: 
  Country: None (occurrence: None)
  Receive Date: 20071127
  Receipt Date: 20071120
  Transmission Date: 20080405
  Serious: Yes (Other)
  Sender: FDA-Public Use
  Company Number: US-JNJFOC-20071107730

PATIENT
  Age: 74 Year
  Sex: Female
  Weight: 117.94 kg

DRUGS (5)
  1. ST. JOSEPH ENTERIC COATED [Suspect]
     Indication: CARDIOVASCULAR EVENT PROPHYLAXIS
  2. LIPITOR [Concomitant]
  3. PREDNISONE TAB [Concomitant]
  4. ACTOSE [Concomitant]
  5. POTASSIUM CHLORIDE [Concomitant]

REACTIONS (1)
  - HAEMATOCHEZIA [None]
